FAERS Safety Report 24619513 (Version 4)
Quarter: 2025Q2

REPORT INFORMATION
  Report Type: Report from Study
  Country: US (occurrence: US)
  Receive Date: 20241114
  Receipt Date: 20250610
  Transmission Date: 20250716
  Serious: Yes (Hospitalization, Other)
  Sender: NOVARTIS
  Company Number: US-002147023-NVSC2024US219293

PATIENT
  Sex: Female

DRUGS (1)
  1. KYMRIAH [Suspect]
     Active Substance: TISAGENLECLEUCEL
     Indication: Diffuse large B-cell lymphoma
     Route: 065

REACTIONS (13)
  - Platelet count decreased [Unknown]
  - Haematological infection [Unknown]
  - Transient ischaemic attack [Unknown]
  - Cerebrovascular accident [Unknown]
  - Hypogammaglobulinaemia [Unknown]
  - Delirium [Unknown]
  - Cytokine release syndrome [Unknown]
  - Renal failure [Unknown]
  - Gait disturbance [Recovering/Resolving]
  - Confusional state [Unknown]
  - Full blood count decreased [Unknown]
  - Hypotension [Unknown]
  - Aphasia [Unknown]
